FAERS Safety Report 9947805 (Version 2)
Quarter: 2014Q1

REPORT INFORMATION
  Report Type: Report from Study
  Country: US (occurrence: US)
  Receive Date: 20140303
  Receipt Date: 20140303
  Transmission Date: 20141002
  Serious: No
  Sender: FDA-Public Use
  Company Number: US-ABBVIE-12P-163-0918894-00

PATIENT
  Age: 51 Year
  Sex: Male

DRUGS (1)
  1. HUMIRA [Suspect]
     Indication: RHEUMATOID ARTHRITIS
     Route: 058
     Dates: start: 201201, end: 201211

REACTIONS (9)
  - Dizziness [Unknown]
  - Fatigue [Unknown]
  - Muscular weakness [Unknown]
  - Clumsiness [Unknown]
  - Pain in extremity [Not Recovered/Not Resolved]
  - Paraesthesia [Not Recovered/Not Resolved]
  - Lower extremity mass [Not Recovered/Not Resolved]
  - Headache [Unknown]
  - Paraesthesia [Unknown]
